FAERS Safety Report 4356083-0 (Version None)
Quarter: 2004Q2

REPORT INFORMATION
  Report Type: 
  Country: None (occurrence: None)
  Receive Date: 20040507
  Receipt Date: 20040507
  Transmission Date: 20050107
  Serious: Yes (Hospitalization)
  Sender: FDA-Public Use
  Company Number: None

PATIENT
  Age: 75 Year
  Sex: Male
  Weight: 66.2 kg

DRUGS (5)
  1. IBUPROFEN [Suspect]
  2. LEVOFLOXACIN [Concomitant]
  3. MAGNESIUM CITRATE [Concomitant]
  4. DOCUSATE [Concomitant]
  5. ACETAMINOPHEN W/ CODEINE [Concomitant]

REACTIONS (1)
  - GASTROINTESTINAL HAEMORRHAGE [None]
